FAERS Safety Report 23023346 (Version 1)
Quarter: 2023Q4

REPORT INFORMATION
  Report Type: Spontaneous
  Country: CZ (occurrence: CZ)
  Receive Date: 20231003
  Receipt Date: 20231003
  Transmission Date: 20240109
  Serious: Yes (Hospitalization, Other)
  Sender: FDA-Public Use
  Company Number: CZ-002147023-NVSC2023CZ209794

PATIENT
  Sex: Male

DRUGS (1)
  1. KYMRIAH [Suspect]
     Active Substance: TISAGENLECLEUCEL
     Indication: Diffuse large B-cell lymphoma
     Dosage: UNK UNK, ONCE/SINGLE
     Route: 042
     Dates: start: 20220908

REACTIONS (12)
  - Streptococcal sepsis [Unknown]
  - Tumour flare [Unknown]
  - Dysarthria [Unknown]
  - Swelling [Unknown]
  - Erythema [Unknown]
  - Cytokine release syndrome [Unknown]
  - Blood creatinine increased [Unknown]
  - Tachycardia [Unknown]
  - Pyrexia [Unknown]
  - Tachypnoea [Unknown]
  - Thrombocytopenia [Unknown]
  - Anaemia [Unknown]
